FAERS Safety Report 18081065 (Version 2)
Quarter: 2020Q3

REPORT INFORMATION
  Report Type: Spontaneous
  Country: US (occurrence: US)
  Receive Date: 20200728
  Receipt Date: 20200921
  Transmission Date: 20201103
  Serious: No
  Sender: FDA-Public Use
  Company Number: US-PFIZER INC-2020240777

PATIENT
  Age: 12 Year
  Sex: Male
  Weight: 36.29 kg

DRUGS (1)
  1. GENOTROPIN [Suspect]
     Active Substance: SOMATROPIN
     Indication: SHORT STATURE
     Dosage: 1.6 MG (INJECTION, FOR FIVE DAYS)
     Dates: start: 202003

REACTIONS (3)
  - Drug dose omission by device [Unknown]
  - Intentional device misuse [Unknown]
  - Device mechanical issue [Unknown]

NARRATIVE: CASE EVENT DATE: 2020
